FAERS Safety Report 5030567-4 (Version None)
Quarter: 2006Q2

REPORT INFORMATION
  Report Type: 
  Country: None (occurrence: None)
  Receive Date: 20060615
  Receipt Date: 20060604
  Transmission Date: 20061013
  Serious: Yes (Other)
  Sender: FDA-Public Use
  Company Number: 2006072732

PATIENT
  Sex: Female

DRUGS (3)
  1. NEURONTIN [Suspect]
     Indication: BACK PAIN
  2. LYRICA [Suspect]
     Indication: HIP SURGERY
     Dosage: 75 MG
     Dates: start: 20060101, end: 20060101
  3. ALL OTHER THERAPEUTIC PRODUCTS (ALL OTHER THERAPEUTIC PRODUCTS) [Concomitant]

REACTIONS (8)
  - ANOREXIA [None]
  - DIZZINESS [None]
  - DYSSTASIA [None]
  - FEAR [None]
  - HIP ARTHROPLASTY [None]
  - NERVE INJURY [None]
  - PROCEDURAL COMPLICATION [None]
  - VISION BLURRED [None]
